FAERS Safety Report 25951240 (Version 1)
Quarter: 2025Q4

REPORT INFORMATION
  Report Type: Report from Study
  Country: EU (occurrence: EU)
  Receive Date: 20251023
  Receipt Date: 20251023
  Transmission Date: 20260118
  Serious: Yes (Hospitalization)
  Sender: ABBVIE
  Company Number: EU-ABBVIE-6359081

PATIENT
  Age: 68 Year
  Sex: Male

DRUGS (1)
  1. FOSCARBIDOPA\FOSLEVODOPA [Suspect]
     Active Substance: FOSCARBIDOPA\FOSLEVODOPA
     Indication: Parkinson^s disease
     Dosage: SD: 1.00 ML, CRN: 0.50 ML/H, CR: 0.60 ML/H, CRH: 0.70 ML/H, ED: 0.25 ML
     Route: 058
     Dates: start: 20240122

REACTIONS (4)
  - Cardiac disorder [Unknown]
  - On and off phenomenon [Unknown]
  - Infusion site induration [Not Recovered/Not Resolved]
  - Weight decreased [Not Recovered/Not Resolved]

NARRATIVE: CASE EVENT DATE: 20240801
